FAERS Safety Report 11555730 (Version 4)
Quarter: 2015Q4

REPORT INFORMATION
  Report Type: Spontaneous
  Country: US (occurrence: US)
  Receive Date: 20150925
  Receipt Date: 20151111
  Transmission Date: 20160304
  Serious: No
  Sender: FDA-Public Use
  Company Number: US-PFIZER INC-2015317878

PATIENT
  Age: 79 Year
  Sex: Female
  Weight: 72 kg

DRUGS (21)
  1. NITROSTAT [Concomitant]
     Active Substance: NITROGLYCERIN
     Dosage: 0.4 MG, UNK ((4X25)SUB/PLACE 1 TABLET UNDER TONGUE ONCE EVERY 5 MIN)
     Dates: start: 20150401
  2. HYDROCODONE BITARTRATE AND ACETAMINOPHEN [Concomitant]
     Active Substance: ACETAMINOPHEN\HYDROCODONE BITARTRATE
     Indication: PAIN
     Dosage: UNK (HYDROCODONE 10MG-ACETAMINOPHEN 325MG/1-2 TABLET BY ORAL ROUTE 4 TIMES EVERYDAY AS NEEDED)
     Route: 048
     Dates: start: 20150917
  3. POLYETHYLENE GLYCOL 3350. [Concomitant]
     Active Substance: POLYETHYLENE GLYCOL 3350
     Dosage: 17 G, 1X/DAY TAKE (MIXED WITH 8 OZ, WATER, JUICE, SODA, COFFEE OR TEA)
     Route: 048
     Dates: start: 20141208
  4. VALTREX [Concomitant]
     Active Substance: VALACYCLOVIR HYDROCHLORIDE
     Indication: HERPES VIRUS INFECTION
     Dosage: 1000 MG, AS NEEDED (TWICE A DAY FOR 3 DAYS)
     Route: 048
     Dates: start: 20150521
  5. ESTROGEN [Suspect]
     Active Substance: ESTRONE\SUS SCROFA OVARY
     Dosage: UNK
     Route: 067
  6. ORENCIA [Concomitant]
     Active Substance: ABATACEPT
     Dosage: 750 MG, UNK (WITH MALTOSE/ EVERY 28 DAYS)
     Route: 042
  7. CYMBALTA [Concomitant]
     Active Substance: DULOXETINE HYDROCHLORIDE
     Dosage: 30 MG, UNK
  8. MORPHINE SULFATE EXTENDED-RELEASE [Concomitant]
     Active Substance: MORPHINE SULFATE
     Dosage: 60 MG, UNK (EVERY 12 HOURS)
     Route: 048
     Dates: start: 20150929
  9. VITAMIN D3 [Concomitant]
     Active Substance: CHOLECALCIFEROL
     Dosage: UNK, 4,000 UNIT CAPSULE
  10. RESTASIS [Concomitant]
     Active Substance: CYCLOSPORINE
     Dosage: 0.05 %, UNK (INSTIL 1 DROP BY OPHTHALMIC ROUTE EVERY 12 HOURS INTO AFFECTED EYE)
     Route: 047
     Dates: start: 20131213
  11. OXYBUTYNIN CHLORIDE. [Concomitant]
     Active Substance: OXYBUTYNIN CHLORIDE
     Indication: MICTURITION URGENCY
     Dosage: 5 MG, UNK (EVERY BEDTIME)
     Route: 048
     Dates: start: 20150909
  12. EMLA [Concomitant]
     Active Substance: LIDOCAINE\PRILOCAINE
     Dosage: 2.5 %, UNK (APPLY TOPICALLY TO VULVA EVERY 5 HOURS)
     Route: 061
     Dates: start: 20150813
  13. PREMARIN [Suspect]
     Active Substance: ESTROGENS, CONJUGATED
     Dosage: 1 G, UNK (3 TIMES PER WEEK)
     Route: 067
  14. KEFLEX [Concomitant]
     Active Substance: CEPHALEXIN
     Dosage: 250 MG, UNK (EVERY 8 HOURS)
     Route: 048
  15. OMEPRAZOLE. [Concomitant]
     Active Substance: OMEPRAZOLE
     Dosage: 40 MG, DAILY (BEFORE A MEAL)
     Route: 048
     Dates: start: 20150225
  16. TRIAMCINOLONE ACETONIDE. [Concomitant]
     Active Substance: TRIAMCINOLONE ACETONIDE
     Indication: VAGINAL DISORDER
     Dosage: 0.5 %, 2X/DAY (TO THE TENDER AREAS IN VULVA AND VAGINAL OPENING)
     Route: 061
     Dates: start: 20150909
  17. AMLODIPINE [Concomitant]
     Active Substance: AMLODIPINE BESYLATE
     Dosage: 2.5 MG, DAILY
     Route: 048
  18. NITROGLYCERIN. [Concomitant]
     Active Substance: NITROGLYCERIN
     Dosage: 1 DF, DAILY
     Route: 062
     Dates: start: 20140814
  19. FLUCONAZOLE. [Concomitant]
     Active Substance: FLUCONAZOLE
     Dosage: 150 MG, 1X/DAY
     Route: 048
     Dates: start: 20150914
  20. ALPRAZOLAM. [Concomitant]
     Active Substance: ALPRAZOLAM
     Indication: ANXIETY
     Dosage: 0.5 MG, UNK (3 TIMES EVERY DAY)
     Route: 048
     Dates: start: 20150928
  21. MULTIVITAMIN /00097801/ [Concomitant]
     Active Substance: VITAMINS
     Dosage: 1 DF, DAILY
     Route: 048

REACTIONS (7)
  - Vaginal discharge [Unknown]
  - Anxiety [Unknown]
  - Headache [Unknown]
  - Muscular weakness [Unknown]
  - Dysuria [Unknown]
  - Vulvovaginal discomfort [Unknown]
  - Vulvovaginal burning sensation [Unknown]
